FAERS Safety Report 6997481-6 (Version None)
Quarter: 2010Q3

REPORT INFORMATION
  Report Type: 
  Country: None (occurrence: None)
  Receive Date: 20100918
  Receipt Date: 20091013
  Transmission Date: 20110219
  Serious: No
  Sender: FDA-Public Use
  Company Number: US-WYE-H11627109

PATIENT
  Sex: Female

DRUGS (4)
  1. PRISTIQ [Suspect]
     Indication: DEPRESSION
     Route: 048
     Dates: start: 20090101
  2. MOBIC [Concomitant]
  3. TRAZODONE HCL [Concomitant]
  4. NEURONTIN [Concomitant]

REACTIONS (1)
  - HYPERHIDROSIS [None]
